FAERS Safety Report 13620194 (Version 1)
Quarter: 2017Q2

REPORT INFORMATION
  Report Type: Spontaneous
  Country: US (occurrence: US)
  Receive Date: 20170607
  Receipt Date: 20170607
  Transmission Date: 20170830
  Serious: No
  Sender: FDA-Public Use
  Company Number: US-GLAXOSMITHKLINE-US2017082815

PATIENT
  Sex: Female

DRUGS (7)
  1. PAROXETINE. [Concomitant]
     Active Substance: PAROXETINE
  2. REQUIP [Suspect]
     Active Substance: ROPINIROLE HYDROCHLORIDE
     Indication: PRODUCT USED FOR UNKNOWN INDICATION
     Dosage: UNK
     Dates: start: 2007
  3. LUNESTA TABLET [Concomitant]
  4. ROPINIROLE. [Concomitant]
     Active Substance: ROPINIROLE
  5. CLONAZEPAM. [Concomitant]
     Active Substance: CLONAZEPAM
  6. ZOCOR [Concomitant]
     Active Substance: SIMVASTATIN
  7. LITHIUM. [Concomitant]
     Active Substance: LITHIUM

REACTIONS (5)
  - Adverse drug reaction [Unknown]
  - Pruritus [Unknown]
  - Hallucination [Unknown]
  - Insomnia [Unknown]
  - Anxiety [Unknown]
